FAERS Safety Report 6027490-5 (Version None)
Quarter: 2009Q1

REPORT INFORMATION
  Report Type: 
  Country: None (occurrence: None)
  Receive Date: 20090105
  Receipt Date: 20081205
  Transmission Date: 20090719
  Serious: No
  Sender: FDA-Public Use
  Company Number: US-BAYER-200814775BCC

PATIENT
  Age: 87 Year
  Sex: Female
  Weight: 67 kg

DRUGS (5)
  1. ALEVE [Suspect]
     Indication: ARTHRITIS
     Dosage: TOTAL DAILY DOSE: 220 MG
     Route: 061
     Dates: start: 20081130
  2. ALEVE [Suspect]
     Dosage: TOTAL DAILY DOSE: 440 MG
     Route: 061
     Dates: start: 20081201
  3. ALEVE [Suspect]
     Dosage: TOTAL DAILY DOSE: 440 MG
     Route: 061
     Dates: start: 20081202, end: 20081202
  4. ATENOLOL [Concomitant]
  5. FUROSEMIDE [Concomitant]

REACTIONS (1)
  - CONSTIPATION [None]
